FAERS Safety Report 8069120-7 (Version None)
Quarter: 2012Q1

REPORT INFORMATION
  Report Type: 
  Country: None (occurrence: None)
  Receive Date: 20120125
  Receipt Date: 20120117
  Transmission Date: 20120608
  Serious: Yes (Other)
  Sender: FDA-Public Use
  Company Number: US-US-EMD SERONO, INC.-7011983

PATIENT
  Sex: Male
  Weight: 102 kg

DRUGS (13)
  1. REBIF [Suspect]
     Indication: MULTIPLE SCLEROSIS
     Route: 058
     Dates: start: 20080717
  2. CLONAZEPAM [Concomitant]
     Indication: SLEEP DISORDER
  3. DILAUDID [Concomitant]
     Indication: PAIN
     Route: 048
  4. AMITRIPTYLINE HCL [Concomitant]
     Indication: SLEEP DISORDER
  5. VICODIN [Concomitant]
     Indication: INFLUENZA LIKE ILLNESS
  6. GABAPENTIN [Concomitant]
     Indication: MUSCLE SPASTICITY
  7. CLONAZEPAM [Concomitant]
     Indication: AFFECTIVE DISORDER
  8. VICODIN [Concomitant]
     Indication: PAIN
  9. VICODIN [Concomitant]
     Indication: SLEEP DISORDER
  10. SERTRALINE HYDROCHLORIDE [Concomitant]
     Indication: DEPRESSION
  11. AMITRIPTYLINE HCL [Concomitant]
     Indication: AFFECTIVE DISORDER
  12. XANAX [Concomitant]
     Indication: ANXIOLYTIC THERAPY
  13. XANAX [Concomitant]
     Indication: SLEEP DISORDER

REACTIONS (6)
  - SUICIDAL IDEATION [None]
  - INFLUENZA LIKE ILLNESS [None]
  - DEPRESSION [None]
  - PAIN IN EXTREMITY [None]
  - POST-TRAUMATIC STRESS DISORDER [None]
  - INJECTION SITE SWELLING [None]
